FAERS Safety Report 5588156-9 (Version None)
Quarter: 2008Q1

REPORT INFORMATION
  Report Type: 
  Country: None (occurrence: None)
  Receive Date: 20080108
  Receipt Date: 20071224
  Transmission Date: 20080703
  Serious: Yes (Hospitalization)
  Sender: FDA-Public Use
  Company Number: ADE2007-0096

PATIENT
  Age: 81 Year
  Sex: Male

DRUGS (6)
  1. METFORMIN HYDROCHLORIDE [Suspect]
     Dosage: 1 GM - ORAL
     Route: 048
     Dates: end: 20071122
  2. ENALAPRIL MALEATE [Suspect]
     Dosage: 30 MG - ORAL
     Route: 048
     Dates: end: 20071122
  3. CARVEDILOL [Concomitant]
  4. FUROSEMIDE [Concomitant]
  5. NICORANDIL [Concomitant]
  6. WARFARIN SODIUM [Concomitant]

REACTIONS (1)
  - RENAL FAILURE ACUTE [None]
